FAERS Safety Report 12560308 (Version 1)
Quarter: 2016Q3

REPORT INFORMATION
  Report Type: Spontaneous
  Country: US (occurrence: US)
  Receive Date: 20160715
  Receipt Date: 20160715
  Transmission Date: 20161109
  Serious: No
  Sender: FDA-Public Use
  Company Number: US-JNJFOC-20160521812

PATIENT
  Age: 61 Year
  Sex: Female
  Weight: 70.31 kg

DRUGS (4)
  1. WOMENS ROGAINE UNSCENTED [Suspect]
     Active Substance: MINOXIDIL
     Route: 061
  2. ALL OTHER THERAPEUTIC PRODUCTS [Concomitant]
     Active Substance: UNSPECIFIED INGREDIENT
     Indication: IRRITABLE BOWEL SYNDROME
     Dosage: AS NEEDED
     Route: 065
  3. WOMENS ROGAINE UNSCENTED [Suspect]
     Active Substance: MINOXIDIL
     Indication: ALOPECIA
     Dosage: 1/2 CAP, DAILY
     Route: 061
  4. RISEDRONATE [Concomitant]
     Active Substance: RISEDRONATE SODIUM
     Indication: OSTEOPOROSIS
     Dosage: ONCE WEEKLY
     Route: 065

REACTIONS (1)
  - Alopecia [Recovering/Resolving]
